FAERS Safety Report 24730703 (Version 2)
Quarter: 2024Q4

REPORT INFORMATION
  Report Type: Spontaneous
  Country: US (occurrence: US)
  Receive Date: 20241213
  Receipt Date: 20241217
  Transmission Date: 20250115
  Serious: No
  Sender: NOVARTIS
  Company Number: US-002147023-NVSC2024US236486

PATIENT
  Sex: Female

DRUGS (1)
  1. COSENTYX [Suspect]
     Active Substance: SECUKINUMAB
     Indication: Product used for unknown indication
     Dosage: UNK UNK, Q4W (150MG X2)
     Route: 065

REACTIONS (6)
  - Device malfunction [Unknown]
  - Condition aggravated [Unknown]
  - Device issue [Unknown]
  - Product dispensing issue [Unknown]
  - Device leakage [Unknown]
  - Needle issue [Unknown]
